FAERS Safety Report 11640020 (Version 1)
Quarter: 2015Q4

REPORT INFORMATION
  Report Type: Spontaneous
  Country: US (occurrence: None)
  Receive Date: 20151016
  Receipt Date: 20151016
  Transmission Date: 20160304
  Serious: No
  Sender: FDA-Public Use
  Company Number: None

PATIENT
  Sex: Female

DRUGS (10)
  1. WELLBUTRIN [Concomitant]
     Active Substance: BUPROPION HYDROCHLORIDE
  2. COPAXONE [Concomitant]
     Active Substance: GLATIRAMER ACETATE
  3. VITAMIN D [Concomitant]
     Active Substance: CHOLECALCIFEROL
  4. GLATOPA [Suspect]
     Active Substance: GLATIRAMER ACETATE
     Indication: MULTIPLE SCLEROSIS
     Route: 058
     Dates: start: 20150811
  5. AMPYRA [Concomitant]
     Active Substance: DALFAMPRIDINE
  6. FISH OIL [Concomitant]
     Active Substance: FISH OIL
  7. BUPROPION. [Concomitant]
     Active Substance: BUPROPION
  8. LEXAPRO [Concomitant]
     Active Substance: ESCITALOPRAM OXALATE
  9. BACLOFEN. [Concomitant]
     Active Substance: BACLOFEN
  10. RITALIN [Concomitant]
     Active Substance: METHYLPHENIDATE HYDROCHLORIDE

REACTIONS (5)
  - Post procedural complication [None]
  - Feeling abnormal [None]
  - Pruritus [None]
  - Dyspnoea [None]
  - Nausea [None]
